FAERS Safety Report 17145928 (Version 1)
Quarter: 2019Q4

REPORT INFORMATION
  Report Type: Spontaneous
  Country: SE (occurrence: SE)
  Receive Date: 20191212
  Receipt Date: 20191212
  Transmission Date: 20200122
  Serious: Yes (Hospitalization)
  Sender: FDA-Public Use
  Company Number: SE-TEVA-2019-SE-1149119

PATIENT
  Age: 18 Year
  Sex: Female

DRUGS (4)
  1. LERGIGAN (PROMETHAZINE HYDROCHLORIDE) [Suspect]
     Active Substance: PROMETHAZINE HYDROCHLORIDE
     Dosage: 500 MG ^FROM 2 TO 4 PM?^
     Route: 048
     Dates: start: 20180119, end: 20180119
  2. RITALIN [Concomitant]
     Active Substance: METHYLPHENIDATE HYDROCHLORIDE
  3. OXASCAND [Suspect]
     Active Substance: OXAZEPAM
     Dosage: 75 MG ^FROM 2 TO 4 PM?^
     Route: 048
     Dates: start: 20180119, end: 20180119
  4. LAMOTRIGINE. [Concomitant]
     Active Substance: LAMOTRIGINE

REACTIONS (4)
  - Intentional self-injury [Unknown]
  - Intentional overdose [Unknown]
  - Nausea [Unknown]
  - Tachycardia [Unknown]

NARRATIVE: CASE EVENT DATE: 20180119
